FAERS Safety Report 7154164-X (Version None)
Quarter: 2010Q4

REPORT INFORMATION
  Report Type: 
  Country: None (occurrence: None)
  Receive Date: 20101213
  Receipt Date: 20101201
  Transmission Date: 20110411
  Serious: Yes (Hospitalization)
  Sender: FDA-Public Use
  Company Number: JP-PFIZER INC-2010161944

PATIENT
  Age: 65 Year
  Sex: Female

DRUGS (9)
  1. LYRICA [Suspect]
     Indication: POST HERPETIC NEURALGIA
     Dosage: 75 MG, 1X/DAY
     Route: 048
     Dates: start: 20101201, end: 20101201
  2. ASPIRIN [Concomitant]
     Dosage: 100 MG, UNK
     Route: 048
  3. BLOPRESS [Concomitant]
     Dosage: 8 MG, UNK
     Route: 048
  4. NORVASC [Concomitant]
     Dosage: 5 MG, UNK
     Route: 048
  5. WARFARIN [Concomitant]
     Dosage: 1 MG, UNK
     Route: 048
  6. BEZATOL [Concomitant]
     Route: 048
  7. MAGNESIUM OXIDE [Concomitant]
     Route: 048
  8. NOVORAPID [Concomitant]
     Dosage: UNK
     Route: 048
  9. INSULIN DETEMIR [Concomitant]

REACTIONS (3)
  - DIZZINESS [None]
  - DYSPHEMIA [None]
  - GAIT DISTURBANCE [None]
